FAERS Safety Report 4485576-0 (Version None)
Quarter: 2004Q4

REPORT INFORMATION
  Report Type: 
  Country: None (occurrence: None)
  Receive Date: 20041026
  Receipt Date: 20030605
  Transmission Date: 20050328
  Serious: Yes (Disabling, Other)
  Sender: FDA-Public Use
  Company Number: US-MERCK-0306USA00632

PATIENT
  Age: 40 Year
  Sex: Male
  Weight: 127 kg

DRUGS (5)
  1. VIOXX [Suspect]
     Indication: ARTHRALGIA
     Route: 048
     Dates: start: 19990901, end: 20000731
  2. VIOXX [Suspect]
     Route: 048
     Dates: start: 20000820, end: 20000101
  3. VIOXX [Suspect]
     Route: 048
     Dates: start: 20000911, end: 20001017
  4. VICODIN [Concomitant]
     Route: 048
  5. CLONIDINE [Concomitant]
     Route: 048

REACTIONS (15)
  - ADVERSE EVENT [None]
  - ANXIETY [None]
  - BACK INJURY [None]
  - BACK PAIN [None]
  - CHEST WALL PAIN [None]
  - CONTUSION [None]
  - DEPRESSION [None]
  - DRUG INEFFECTIVE [None]
  - FALL [None]
  - GASTRIC HAEMORRHAGE [None]
  - HAEMATOCRIT DECREASED [None]
  - JOINT EFFUSION [None]
  - JOINT SPRAIN [None]
  - MENISCUS LESION [None]
  - UPPER RESPIRATORY TRACT INFECTION [None]
